FAERS Safety Report 19470099 (Version 1)
Quarter: 2021Q2

REPORT INFORMATION
  Report Type: Spontaneous
  Country: US (occurrence: US)
  Receive Date: 20210629
  Receipt Date: 20210629
  Transmission Date: 20210717
  Serious: Yes (Other)
  Sender: FDA-Public Use
  Company Number: US-NOVOPROD-816986

PATIENT
  Age: 68 Year
  Sex: Male

DRUGS (3)
  1. OZEMPIC [Suspect]
     Active Substance: SEMAGLUTIDE
     Dosage: 0.5 MG
     Route: 058
     Dates: start: 2021, end: 2021
  2. COVID?19 VACCINE NOS. [Suspect]
     Active Substance: COVID-19 VACCINE NOS
     Indication: COVID-19 PROPHYLAXIS
     Dosage: UNK
  3. OZEMPIC [Suspect]
     Active Substance: SEMAGLUTIDE
     Indication: TYPE 2 DIABETES MELLITUS
     Dosage: 0.25 MG
     Route: 058
     Dates: start: 202104, end: 2021

REACTIONS (7)
  - Post procedural infection [Not Recovered/Not Resolved]
  - Abdominal distension [Unknown]
  - Gastritis [Not Recovered/Not Resolved]
  - Flatulence [Unknown]
  - Intestinal obstruction [Unknown]
  - Insomnia [Unknown]
  - Feeding disorder [Unknown]

NARRATIVE: CASE EVENT DATE: 2021
